FAERS Safety Report 4442117-1 (Version None)
Quarter: 2004Q3

REPORT INFORMATION
  Report Type: 
  Country: None (occurrence: None)
  Receive Date: 20040903
  Receipt Date: 20040719
  Transmission Date: 20050211
  Serious: Yes (Hospitalization, Disabling)
  Sender: FDA-Public Use
  Company Number: 2004UW14071

PATIENT
  Age: 63 Year
  Sex: Female
  Weight: 68.0396 kg

DRUGS (11)
  1. CRESTOR [Suspect]
     Indication: HYPERLIPIDAEMIA
     Dosage: 10 MG DAILY PO
     Route: 048
     Dates: start: 20040421, end: 20040609
  2. NORVASC [Concomitant]
  3. METOPROLOL [Concomitant]
  4. PORTONIX [Concomitant]
  5. POTASSIUM PHOSPHATES [Concomitant]
  6. CALCIUM CARBONATE [Concomitant]
  7. PREDNISONE [Concomitant]
  8. HUMULIN [Concomitant]
  9. LANTUS [Concomitant]
  10. BACTRIM [Concomitant]
  11. CELLCEPT [Concomitant]

REACTIONS (1)
  - PANCREATITIS [None]
